FAERS Safety Report 5320132-3 (Version None)
Quarter: 2007Q2

REPORT INFORMATION
  Report Type: 
  Country: None (occurrence: None)
  Receive Date: 20070503
  Receipt Date: 20070419
  Transmission Date: 20071010
  Serious: Yes (Hospitalization, Other)
  Sender: FDA-Public Use
  Company Number: 450001E07USA

PATIENT
  Age: 33 Year
  Sex: Female
  Weight: 104 kg

DRUGS (1)
  1. SEROPHENE [Suspect]
     Indication: INFERTILITY
     Dosage: 50 MG, 1 IN 1 DAYS, ORAL
     Route: 048
     Dates: start: 20070323, end: 20070327

REACTIONS (2)
  - ABORTION SPONTANEOUS [None]
  - DRUG EXPOSURE DURING PREGNANCY [None]
